FAERS Safety Report 5926959-9 (Version None)
Quarter: 2008Q4

REPORT INFORMATION
  Report Type: 
  Country: None (occurrence: None)
  Receive Date: 20081021
  Receipt Date: 20081021
  Transmission Date: 20090506
  Serious: Yes (Other)
  Sender: FDA-Public Use
  Company Number: None

PATIENT
  Age: 25 Year
  Sex: Female
  Weight: 55.3388 kg

DRUGS (1)
  1. LAMOTRIGINE [Suspect]
     Indication: BIPOLAR DISORDER
     Dosage: 100MG 2X DAILY PO
     Route: 048
     Dates: start: 20080816, end: 20080820

REACTIONS (15)
  - COLD SWEAT [None]
  - DISTURBANCE IN ATTENTION [None]
  - DYSKINESIA [None]
  - HEAD TITUBATION [None]
  - HEADACHE [None]
  - IMPAIRED DRIVING ABILITY [None]
  - MUSCLE TWITCHING [None]
  - NAUSEA [None]
  - PRESYNCOPE [None]
  - PRODUCT QUALITY ISSUE [None]
  - THINKING ABNORMAL [None]
  - TONGUE DISORDER [None]
  - TREMOR [None]
  - VERBIGERATION [None]
  - VISION BLURRED [None]
